FAERS Safety Report 6759072-1 (Version None)
Quarter: 2010Q2

REPORT INFORMATION
  Report Type: 
  Country: None (occurrence: None)
  Receive Date: 20100607
  Receipt Date: 20100526
  Transmission Date: 20101027
  Serious: Yes (Other)
  Sender: FDA-Public Use
  Company Number: US-WYE-H15406110

PATIENT

DRUGS (2)
  1. PROTONIX [Suspect]
     Dosage: UNKNOWN
     Route: 042
  2. HEPARIN [Suspect]
     Dosage: UNKNOWN

REACTIONS (1)
  - THROMBOCYTOPENIA [None]
